FAERS Safety Report 21706621 (Version 4)
Quarter: 2025Q3

REPORT INFORMATION
  Report Type: Spontaneous
  Country: JP (occurrence: JP)
  Receive Date: 20221209
  Receipt Date: 20250810
  Transmission Date: 20251021
  Serious: Yes (Hospitalization)
  Sender: ALEXION PHARMACEUTICALS
  Company Number: 2022A398525

PATIENT
  Age: 52 Year
  Sex: Female
  Weight: 46 kg

DRUGS (5)
  1. TAGRISSO [Suspect]
     Active Substance: OSIMERTINIB
     Indication: Non-small cell lung cancer
     Dosage: 80 MILLIGRAM, QD
     Route: 065
     Dates: start: 20220727, end: 20220808
  2. TAGRISSO [Suspect]
     Active Substance: OSIMERTINIB
     Dosage: 40 MILLIGRAM, QD
     Route: 065
     Dates: start: 20221026
  3. ESZOPICLONE [Concomitant]
     Active Substance: ESZOPICLONE
     Dosage: BEFORE BEDTIME
  4. OXINORM [Concomitant]
     Indication: Pain
  5. METOCLOPRAMIDE [Concomitant]
     Active Substance: METOCLOPRAMIDE

REACTIONS (2)
  - Colitis ulcerative [Not Recovered/Not Resolved]
  - Eczema infected [Unknown]

NARRATIVE: CASE EVENT DATE: 20220808
